FAERS Safety Report 8966840 (Version 2)
Quarter: 2013Q1

REPORT INFORMATION
  Report Type: Spontaneous
  Country: US (occurrence: US)
  Receive Date: 20121214
  Receipt Date: 20130103
  Transmission Date: 20140127
  Serious: Yes (Other)
  Sender: FDA-Public Use
  Company Number: CHPA2012US024770

PATIENT
  Age: 65 Year
  Sex: Female

DRUGS (3)
  1. EXCEDRIN MIGRAINE [Suspect]
     Indication: HANGOVER
     Dosage: 2 DF, 1-5 TIMES/WEEK
     Route: 048
     Dates: start: 1977
  2. MULTIVITAMINS [Concomitant]
  3. DRUG THERAPY NOS [Concomitant]

REACTIONS (9)
  - Blood pressure increased [Unknown]
  - Face injury [Unknown]
  - Road traffic accident [Unknown]
  - Malaise [Recovered/Resolved]
  - Pain [Recovered/Resolved]
  - Diarrhoea [Recovered/Resolved]
  - Vomiting [Recovered/Resolved]
  - Asthenia [Recovered/Resolved]
  - Off label use [Recovered/Resolved]
